FAERS Safety Report 7509476-4 (Version None)
Quarter: 2011Q2

REPORT INFORMATION
  Report Type: 
  Country: None (occurrence: None)
  Receive Date: 20110527
  Receipt Date: 20110516
  Transmission Date: 20111010
  Serious: Yes (Other)
  Sender: FDA-Public Use
  Company Number: US-CELGENEUS-163-21880-11052335

PATIENT
  Sex: Female
  Weight: 47 kg

DRUGS (2)
  1. REVLIMID [Suspect]
     Dosage: 10 MILLIGRAM
     Route: 048
     Dates: start: 20100716
  2. REVLIMID [Suspect]
     Indication: MULTIPLE MYELOMA
     Dosage: 10 MILLIGRAM
     Route: 048
     Dates: start: 20090526, end: 20100205

REACTIONS (4)
  - ABDOMINAL PAIN UPPER [None]
  - ABDOMINAL PAIN [None]
  - MACULAR DEGENERATION [None]
  - WEIGHT DECREASED [None]
